FAERS Safety Report 5049994-4 (Version None)
Quarter: 2006Q2

REPORT INFORMATION
  Report Type: 
  Country: None (occurrence: None)
  Receive Date: 20060601
  Receipt Date: 20060213
  Transmission Date: 20061013
  Serious: No
  Sender: FDA-Public Use
  Company Number: US200602002817

PATIENT
  Age: 71 Year
  Sex: Female

DRUGS (4)
  1. CYMBALTA [Suspect]
     Indication: NEUROPATHY PERIPHERAL
     Dosage: 60 MG, 2/D, ORAL
     Route: 048
     Dates: end: 20060114
  2. AMITRIPTYLINE (AMITRIPTYLINE) [Concomitant]
  3. NEURONTIN [Concomitant]
  4. PREGABALIN (PREGABALIN) [Concomitant]

REACTIONS (2)
  - NIGHTMARE [None]
  - THINKING ABNORMAL [None]
